FAERS Safety Report 5139946-8 (Version None)
Quarter: 2006Q4

REPORT INFORMATION
  Report Type: 
  Country: None (occurrence: None)
  Receive Date: 20061031
  Receipt Date: 20060719
  Transmission Date: 20070319
  Serious: Yes (Hospitalization, Other)
  Sender: FDA-Public Use
  Company Number: AU-BAYER-200613167GDS

PATIENT
  Age: 45 Year
  Sex: Male
  Weight: 93 kg

DRUGS (36)
  1. SORAFENIB [Suspect]
     Indication: RENAL CELL CARCINOMA STAGE UNSPECIFIED
     Dosage: TOTAL DAILY DOSE: 800 MG
     Route: 048
     Dates: start: 20050810, end: 20051004
  2. SORAFENIB [Suspect]
     Dosage: TOTAL DAILY DOSE: 800 MG
     Route: 048
     Dates: start: 20060517, end: 20060718
  3. SORAFENIB [Suspect]
     Dosage: TOTAL DAILY DOSE: 800 MG
     Route: 048
     Dates: start: 20060125, end: 20060321
  4. SORAFENIB [Suspect]
     Dosage: TOTAL DAILY DOSE: 800 MG
     Route: 048
     Dates: start: 20060322, end: 20060516
  5. SORAFENIB [Suspect]
     Dosage: TOTAL DAILY DOSE: 800 MG
     Route: 048
     Dates: start: 20051130, end: 20060124
  6. SORAFENIB [Suspect]
     Dosage: TOTAL DAILY DOSE: 800 MG
     Route: 048
     Dates: start: 20060719
  7. SORAFENIB [Suspect]
     Dosage: TOTAL DAILY DOSE: 800 MG
     Route: 048
     Dates: start: 20051005, end: 20051129
  8. CLEXANE [Concomitant]
     Indication: THROMBOSIS PROPHYLAXIS
     Route: 058
     Dates: start: 20050922
  9. POLY VISC EYE [Concomitant]
     Indication: DRY EYE
     Route: 061
     Dates: start: 20060323
  10. PREDNISOLONE [Concomitant]
     Indication: GRAFT VERSUS HOST DISEASE
     Route: 048
     Dates: start: 20060508, end: 20060517
  11. PREDNISOLONE [Concomitant]
     Route: 048
     Dates: start: 20060708
  12. PREDNISOLONE [Concomitant]
     Route: 048
     Dates: start: 20060706, end: 20060707
  13. PREDNISOLONE [Concomitant]
     Route: 048
     Dates: start: 20060518, end: 20060520
  14. PREDNISOLONE [Concomitant]
     Route: 048
     Dates: start: 20060521, end: 20060705
  15. FLUCONAZOLE [Concomitant]
     Indication: INFECTION PROPHYLAXIS
     Route: 048
     Dates: start: 20051003, end: 20060518
  16. SOMAC [Concomitant]
     Indication: GASTROOESOPHAGEAL REFLUX DISEASE
     Route: 048
     Dates: start: 20050401
  17. MEGAFOL [Concomitant]
     Indication: VITAMIN SUPPLEMENTATION
     Route: 048
     Dates: start: 20050908
  18. NORVASC [Concomitant]
     Indication: HYPERTENSION
     Route: 048
     Dates: start: 20050401
  19. FLORINEF [Concomitant]
     Indication: ADRENALECTOMY
     Route: 048
     Dates: start: 20030201
  20. BACTRIM [Concomitant]
     Indication: PROPHYLAXIS
     Route: 048
     Dates: start: 20050819
  21. VALTREX [Concomitant]
     Indication: CONGENITAL CYTOMEGALOVIRUS INFECTION
     Route: 048
     Dates: start: 20060515
  22. OXYCODONE HCL [Concomitant]
     Indication: ORAL PAIN
     Route: 048
     Dates: start: 20060403, end: 20060718
  23. PENICILLIN [Concomitant]
     Indication: INFECTION PROPHYLAXIS
     Route: 048
     Dates: start: 20050530, end: 20060714
  24. SODIUM-BICARB MOUTHWASH [Concomitant]
     Indication: DENTAL DISORDER PROPHYLAXIS
     Route: 048
     Dates: start: 20051017
  25. OXYCODONE HCL [Concomitant]
     Indication: BREAKTHROUGH PAIN
     Route: 048
     Dates: start: 20060403, end: 20060712
  26. ACETAMINOPHEN [Concomitant]
     Indication: ORAL PAIN
     Route: 048
     Dates: start: 20060403
  27. N-ACETYL CYSTINE 10% [Concomitant]
     Indication: GRAFT VERSUS HOST DISEASE
     Route: 047
     Dates: start: 20060118
  28. DURAGESIC-100 [Concomitant]
     Indication: ANALGESIC EFFECT
     Dosage: TOTAL DAILY DOSE: 600 ?G
     Route: 061
     Dates: start: 20060403
  29. CELLUFRESH TEARS [Concomitant]
     Indication: DRY EYE
     Route: 047
     Dates: start: 20051017
  30. DEXAMETHASONE MOUTHWASH [Concomitant]
     Indication: STOMATITIS
     Route: 048
     Dates: start: 20060323
  31. CYCLOSPORIN 0.1% EYE DROPS [Concomitant]
     Indication: GRAFT VERSUS HOST DISEASE
     Route: 047
     Dates: start: 20060118, end: 20060713
  32. TACROLIMUS [Concomitant]
     Indication: IMMUNOSUPPRESSANT DRUG THERAPY
     Route: 048
     Dates: start: 20060223
  33. FLORIDEX NATURAL IRON SUPPLEMENT [Concomitant]
     Indication: HAEMOGLOBIN DECREASED
     Route: 048
     Dates: start: 20060518, end: 20060615
  34. FERRO GRADUMET [Concomitant]
     Indication: HAEMOGLOBIN DECREASED
     Route: 048
     Dates: start: 20060616, end: 20060710
  35. OXYCONTIN SR [Concomitant]
     Indication: ANALGESIC EFFECT
     Route: 048
     Dates: start: 20060718
  36. OXYCONTIN SR [Concomitant]
     Route: 048
     Dates: start: 20060403, end: 20060718

REACTIONS (5)
  - BLOOD ALKALINE PHOSPHATASE INCREASED [None]
  - GAMMA-GLUTAMYLTRANSFERASE INCREASED [None]
  - GRAFT VERSUS HOST DISEASE [None]
  - PYREXIA [None]
  - RESPIRATORY SYNCYTIAL VIRUS INFECTION [None]
